FAERS Safety Report 9418861 (Version 1)
Quarter: 2013Q3

REPORT INFORMATION
  Report Type: Spontaneous
  Country: US (occurrence: US)
  Receive Date: 20130725
  Receipt Date: 20130725
  Transmission Date: 20140515
  Serious: No
  Sender: FDA-Public Use
  Company Number: US-MYLANLABS-2012S1015683

PATIENT
  Sex: Female

DRUGS (1)
  1. CIPROFLOXACIN TABLETS, USP [Suspect]
     Indication: URINARY TRACT INFECTION
     Route: 048
     Dates: start: 20120723

REACTIONS (2)
  - Fatigue [Not Recovered/Not Resolved]
  - Nasopharyngitis [Not Recovered/Not Resolved]
